FAERS Safety Report 4940604-0 (Version None)
Quarter: 2006Q1

REPORT INFORMATION
  Report Type: 
  Country: None (occurrence: None)
  Receive Date: 20060126
  Receipt Date: 20050906
  Transmission Date: 20060701
  Serious: Yes (Hospitalization)
  Sender: FDA-Public Use
  Company Number: USA040771527

PATIENT
  Age: 86 Year
  Sex: Female
  Weight: 41 kg

DRUGS (12)
  1. FORTEO [Suspect]
     Indication: OSTEOPOROSIS
     Dosage: 20 UG DAY
     Dates: start: 20040617
  2. PREDNISONE [Concomitant]
  3. FOLIC ACID [Concomitant]
  4. METHOTREXATE [Concomitant]
  5. VIOXX [Concomitant]
  6. CALTRATE + D [Concomitant]
  7. LASIX [Concomitant]
  8. VASOTEC [Concomitant]
  9. PREVACID [Concomitant]
  10. BEXTRA [Concomitant]
  11. POTASSIUM [Concomitant]
  12. TYLENOL (CAPLET) [Concomitant]

REACTIONS (15)
  - ABDOMINAL DISCOMFORT [None]
  - BLOODY DISCHARGE [None]
  - CHEST DISCOMFORT [None]
  - CONSTIPATION [None]
  - CYSTITIS [None]
  - DRY MOUTH [None]
  - FATIGUE [None]
  - HYPERAESTHESIA [None]
  - HYPERHIDROSIS [None]
  - INJECTION SITE HAEMORRHAGE [None]
  - INSOMNIA [None]
  - LIP DRY [None]
  - NASAL DRYNESS [None]
  - PNEUMONIA [None]
  - UPPER LIMB FRACTURE [None]
